FAERS Safety Report 7435616-1 (Version None)
Quarter: 2011Q2

REPORT INFORMATION
  Report Type: 
  Country: None (occurrence: None)
  Receive Date: 20110425
  Receipt Date: 20110415
  Transmission Date: 20111010
  Serious: Yes (Other)
  Sender: FDA-Public Use
  Company Number: US-ASTRAZENECA-2011SE22009

PATIENT
  Age: 65 Year
  Sex: Male

DRUGS (1)
  1. SEROQUEL [Suspect]
     Route: 048

REACTIONS (4)
  - BRAIN NEOPLASM [None]
  - VERBIGERATION [None]
  - COGNITIVE DISORDER [None]
  - BRAIN OEDEMA [None]
